FAERS Safety Report 8460677-0 (Version None)
Quarter: 2012Q2

REPORT INFORMATION
  Report Type: 
  Country: None (occurrence: None)
  Receive Date: 20120622
  Receipt Date: 20120615
  Transmission Date: 20120825
  Serious: Yes (Other)
  Sender: FDA-Public Use
  Company Number: PHHY2012PL048347

PATIENT
  Age: 84 Year
  Sex: Female

DRUGS (3)
  1. MILOGRIN [Concomitant]
     Dosage: UNK UKN, UNK
  2. EXELON [Suspect]
     Dosage: 4.6 MG, UNK
     Route: 062
     Dates: start: 20111101
  3. VITAMIN B-12 [Concomitant]

REACTIONS (6)
  - JOINT DISLOCATION [None]
  - LIMB INJURY [None]
  - DIZZINESS [None]
  - FALL [None]
  - VERTIGO [None]
  - PRESYNCOPE [None]
